FAERS Safety Report 5304657-2 (Version None)
Quarter: 2007Q2

REPORT INFORMATION
  Report Type: 
  Country: None (occurrence: None)
  Receive Date: 20070416
  Receipt Date: 20070330
  Transmission Date: 20071010
  Serious: Yes (Hospitalization)
  Sender: FDA-Public Use
  Company Number: 229436

PATIENT
  Sex: Female

DRUGS (3)
  1. RAPTIVA [Suspect]
     Indication: PSORIASIS
     Dosage: 0.142 MG/KG, 1/WEEK, SUBCUTANEOUS
     Route: 058
     Dates: start: 20060627
  2. METHOTREXATE [Concomitant]
  3. PREDNISOLONE [Concomitant]

REACTIONS (4)
  - IMMUNOSUPPRESSION [None]
  - LOBAR PNEUMONIA [None]
  - PSORIATIC ARTHROPATHY [None]
  - RENAL FAILURE ACUTE [None]
